FAERS Safety Report 10100825 (Version 2)
Quarter: 2014Q2

REPORT INFORMATION
  Report Type: Spontaneous
  Country: DE (occurrence: DE)
  Receive Date: 20140423
  Receipt Date: 20140515
  Transmission Date: 20141212
  Serious: Yes (Death)
  Sender: FDA-Public Use
  Company Number: DE-B.I. PHARMACEUTICALS,INC./RIDGEFIELD-2014-BI-18127DE

PATIENT
  Age: 78 Year
  Sex: Female
  Weight: 65 kg

DRUGS (8)
  1. PRADAXA [Suspect]
     Indication: ATRIAL FIBRILLATION
     Dosage: 220 MG
     Route: 048
  2. PRADAXA [Suspect]
     Indication: ATRIAL FIBRILLATION
  3. ASS [Concomitant]
     Dosage: 100 MG
     Route: 065
  4. BISPOPROLOL [Concomitant]
     Dosage: 5 MG
     Route: 065
  5. MOLSIDOMIN [Concomitant]
     Dosage: 8 MG
     Route: 065
  6. PANTOZOL [Concomitant]
     Route: 065
  7. SIMVA [Concomitant]
     Dosage: STRENGTH: 40
     Route: 065
  8. HYDROSIZIN [Concomitant]
     Route: 065

REACTIONS (7)
  - Shock haemorrhagic [Fatal]
  - Coagulopathy [Fatal]
  - Post procedural haemorrhage [Fatal]
  - Intestinal ischaemia [Unknown]
  - Skin haemorrhage [Unknown]
  - Wound haemorrhage [Unknown]
  - Haematochezia [Unknown]
